FAERS Safety Report 9355722 (Version 3)
Quarter: 2014Q2

REPORT INFORMATION
  Report Type: Spontaneous
  Country: US (occurrence: US)
  Receive Date: 20130619
  Receipt Date: 20140411
  Transmission Date: 20141212
  Serious: Yes (Death)
  Sender: FDA-Public Use
  Company Number: US-B.I. PHARMACEUTICALS,INC./RIDGEFIELD-2013-BI-16750BP

PATIENT
  Age: 77 Year
  Sex: Male
  Weight: 124.74 kg

DRUGS (22)
  1. PRADAXA [Suspect]
     Indication: CEREBROVASCULAR ACCIDENT PROPHYLAXIS
     Dosage: 150 MG
     Route: 048
     Dates: start: 201202, end: 20120512
  2. PRADAXA [Suspect]
     Indication: THROMBOSIS PROPHYLAXIS
  3. GLIPIZIDE [Concomitant]
     Dosage: 20 MG
     Route: 048
  4. MULTI-DAY [Concomitant]
     Route: 048
  5. OXYCODONE [Concomitant]
     Route: 048
  6. ALBUTEROL SULFATE [Concomitant]
     Route: 065
  7. DILTIAZEM HCL [Concomitant]
     Dosage: 120 MG
     Route: 048
  8. PRAVACHOL [Concomitant]
     Dosage: 40 MG
     Route: 048
  9. NITROLINGUAL [Concomitant]
     Route: 065
  10. OXYGEN [Concomitant]
     Route: 065
  11. BISOPROLOL-HYDROCHLOROTHIAZIDE [Concomitant]
     Route: 048
  12. NOVOLOG FLEXPEN [Concomitant]
     Route: 065
  13. FLOVENT DISKUS [Concomitant]
     Route: 065
  14. GAS X [Concomitant]
     Dosage: 80 MG
     Route: 065
  15. VITAMIN D3 [Concomitant]
     Dosage: 2000 U
     Route: 048
  16. LOSARTAN [Concomitant]
     Dosage: 100 MG
     Route: 048
  17. BENZONATATE [Concomitant]
     Dosage: 200 MG
     Route: 065
  18. CLARITIN [Concomitant]
     Route: 065
  19. FLUTICASONE [Concomitant]
     Route: 065
  20. ONGLYZA [Concomitant]
     Dosage: 2.5 MG
     Route: 048
  21. POTASSIUM CHLORIDE [Concomitant]
     Dosage: 10 MEQ
     Route: 048
  22. FUROSEMIDE [Concomitant]
     Dosage: 40 MG
     Route: 048

REACTIONS (1)
  - Pulmonary haemorrhage [Fatal]
